FAERS Safety Report 7615814-4 (Version None)
Quarter: 2011Q3

REPORT INFORMATION
  Report Type: 
  Country: None (occurrence: None)
  Receive Date: 20110711
  Receipt Date: 20110627
  Transmission Date: 20111222
  Serious: Yes (Hospitalization, Other)
  Sender: FDA-Public Use
  Company Number: 1000021225

PATIENT
  Age: 74 Year
  Sex: Female

DRUGS (5)
  1. MEMANTINE HCL [Suspect]
     Indication: DEMENTIA ALZHEIMER'S TYPE
     Dosage: 20 MG (20 MG,1 IN 1 D),ORAL
     Route: 048
     Dates: start: 20080101
  2. XELEVIA (SITAGLIPTIN PHOSPHATE) (SITAGLIPTIN PHOSPHATE) [Concomitant]
  3. RIVOTRIL (CLONAZEPAM) (DROPS) (CLONAZEPAM) [Concomitant]
  4. METFORMIN HCL [Concomitant]
  5. OMEPRAZOL (OMEPRAZOLE) (OMEPRAZOLE) [Concomitant]

REACTIONS (3)
  - URINARY TRACT INFECTION [None]
  - URINARY RETENTION [None]
  - MICTURITION FREQUENCY DECREASED [None]
